FAERS Safety Report 25099057 (Version 2)
Quarter: 2025Q1

REPORT INFORMATION
  Report Type: Report from Study
  Country: GB (occurrence: GB)
  Receive Date: 20250320
  Receipt Date: 20250328
  Transmission Date: 20250408
  Serious: Yes (Other)
  Sender: SAMSUNG BIOEPIS
  Company Number: GB-SAMSUNG BIOEPIS-SB-2025-09609

PATIENT
  Age: 75 Year
  Sex: Female

DRUGS (1)
  1. PYZCHIVA [Suspect]
     Active Substance: USTEKINUMAB-TTWE
     Indication: Crohn^s disease
     Route: 058
     Dates: start: 202408

REACTIONS (4)
  - Lower respiratory tract infection [Not Recovered/Not Resolved]
  - Skin lesion [Unknown]
  - Impaired healing [Unknown]
  - Off label use [Unknown]
